FAERS Safety Report 4457305-8 (Version None)
Quarter: 2004Q3

REPORT INFORMATION
  Report Type: 
  Country: None (occurrence: None)
  Receive Date: 20040922
  Receipt Date: 20040901
  Transmission Date: 20050211
  Serious: Yes (Other)
  Sender: FDA-Public Use
  Company Number: USA040977196

PATIENT
  Sex: Female

DRUGS (3)
  1. STRATTERA [Suspect]
     Indication: ATTENTION DEFICIT/HYPERACTIVITY DISORDER
     Dosage: 25 MG/1 DAY
  2. EFFEXOR [Concomitant]
  3. DIURETIC [Concomitant]

REACTIONS (3)
  - GLAUCOMA [None]
  - OPTIC NERVE CUPPING [None]
  - PRURITUS [None]
